FAERS Safety Report 15867878 (Version 2)
Quarter: 2019Q1

REPORT INFORMATION
  Report Type: Report from Study
  Country: FR (occurrence: FR)
  Receive Date: 20190125
  Receipt Date: 20190226
  Transmission Date: 20190417
  Serious: Yes (Death)
  Sender: FDA-Public Use
  Company Number: FR-PFIZER INC-2019033749

PATIENT

DRUGS (11)
  1. PROCARBAZINE [Suspect]
     Active Substance: PROCARBAZINE
     Indication: HODGKIN^S DISEASE
     Dosage: 100 MG/M2, CYCLIC (ON DAYS 1-7,  EVERY 21 DAYS, FOUR CYCLES)
     Route: 048
  2. TRIMETHOPRIM. [Concomitant]
     Active Substance: TRIMETHOPRIM
     Indication: INFECTION PROPHYLAXIS
     Dosage: 160 MG, CYCLIC (3 DAYS PER WEEK)
  3. CYCLOPHOSPHAMIDE. [Suspect]
     Active Substance: CYCLOPHOSPHAMIDE
     Indication: HODGKIN^S DISEASE
     Dosage: 1250 MG/M2, CYCLIC  (ON DAY 1,  EVERY 21 DAYS, FOUR CYCLES)
     Route: 042
  4. VALACYCLOVIR [Concomitant]
     Active Substance: VALACYCLOVIR HYDROCHLORIDE
     Indication: INFECTION PROPHYLAXIS
     Dosage: 1000 MG, DAILY, CYCLIC
  5. BLEOMYCIN [Suspect]
     Active Substance: BLEOMYCIN SULFATE
     Indication: HODGKIN^S DISEASE
     Dosage: 10 MG/M2, CYCLIC (ON DAY 8, EVERY 21 DAYS, FOUR CYCLES)
     Route: 042
  6. ETOPOSIDE. [Suspect]
     Active Substance: ETOPOSIDE
     Indication: HODGKIN^S DISEASE
     Dosage: 200 MG/M2, CYCLIC (ON DAYS 1-3,  EVERY 21 DAYS, FOUR CYCLES )
     Route: 042
  7. PREDNISONE. [Suspect]
     Active Substance: PREDNISONE
     Indication: HODGKIN^S DISEASE
     Dosage: 40 MG/M2, CYCLIC (FROM DAY 1 TO 14,  EVERY 21 DAYS, FOUR CYCLES)
     Route: 048
  8. SULFAMETHOXAZOLE [Concomitant]
     Active Substance: SULFAMETHOXAZOLE
     Indication: INFECTION PROPHYLAXIS
     Dosage: 800 MG, CYCLIC (3 DAYS PER WEEK)
  9. VINCRISTINE SULFATE. [Suspect]
     Active Substance: VINCRISTINE SULFATE
     Indication: HODGKIN^S DISEASE
     Dosage: 1.4 MG/M2, CYCLIC (ON DAY 8, EVERY 21 DAYS, FOUR CYCLES)
     Route: 042
  10. DOXORUBICIN HCL [Suspect]
     Active Substance: DOXORUBICIN HYDROCHLORIDE
     Indication: HODGKIN^S DISEASE
     Dosage: 35 MG/M2, CYCLIC (ON DAY 1,  EVERY 21 DAYS, FOUR CYCLES)
     Route: 042
  11. G-CSF [Concomitant]
     Active Substance: GRANULOCYTE COLONY-STIMULATING FACTOR NOS
     Indication: NEUTROPENIA
     Dosage: DAY 9 OF EACH CYCLE

REACTIONS (2)
  - Acute respiratory distress syndrome [Fatal]
  - Lung disorder [Fatal]
